FAERS Safety Report 21469829 (Version 4)
Quarter: 2022Q4

REPORT INFORMATION
  Report Type: Report from Study
  Country: US (occurrence: US)
  Receive Date: 20221018
  Receipt Date: 20221219
  Transmission Date: 20230112
  Serious: Yes (Other)
  Sender: FDA-Public Use
  Company Number: US-ABBVIE-4149046

PATIENT
  Age: 89 Year
  Sex: Female

DRUGS (2)
  1. IMBRUVICA [Suspect]
     Active Substance: IBRUTINIB
     Indication: Plasma cell myeloma
     Route: 048
     Dates: start: 20220901
  2. IMBRUVICA [Suspect]
     Active Substance: IBRUTINIB
     Indication: Plasma cell myeloma
     Route: 048

REACTIONS (12)
  - Fall [Unknown]
  - Gait disturbance [Unknown]
  - Dyspnoea [Unknown]
  - Swelling [Unknown]
  - Haemoglobin abnormal [Unknown]
  - Pain [Unknown]
  - Asthenia [Unknown]
  - Head injury [Unknown]
  - Peripheral swelling [Unknown]
  - Contusion [Unknown]
  - Joint swelling [Unknown]
  - Arthralgia [Unknown]

NARRATIVE: CASE EVENT DATE: 20221001
